FAERS Safety Report 19857233 (Version 1)
Quarter: 2021Q3

REPORT INFORMATION
  Report Type: Spontaneous
  Country: US (occurrence: US)
  Receive Date: 20210921
  Receipt Date: 20210921
  Transmission Date: 20211014
  Serious: No
  Sender: FDA-Public Use
  Company Number: US-ELI_LILLY_AND_COMPANY-US202109007331

PATIENT
  Age: 55 Year
  Sex: Male

DRUGS (6)
  1. ATORVASTATIN [Concomitant]
     Active Substance: ATORVASTATIN
     Indication: TYPE 1 DIABETES MELLITUS
  2. HUMULIN N [Suspect]
     Active Substance: INSULIN HUMAN
     Indication: TYPE 1 DIABETES MELLITUS
     Dosage: 30 U, EACH MORNING (ALSO ON SLIDING SCALE)
     Route: 065
     Dates: start: 2017
  3. HUMULIN N [Suspect]
     Active Substance: INSULIN HUMAN
     Dosage: 11 U, DAILY (NIGHT) (ALSO ON SLIDING SCALE)
     Route: 065
     Dates: start: 2017
  4. NOVOLOG [Suspect]
     Active Substance: INSULIN ASPART
     Indication: TYPE 1 DIABETES MELLITUS
     Dosage: 10 U, PRN (SLIDING SCALE)
     Route: 065
  5. HUMULIN N [Suspect]
     Active Substance: INSULIN HUMAN
     Dosage: 12 U, DAILY (NIGHT)
     Route: 065
     Dates: start: 20210916
  6. HUMULIN N [Suspect]
     Active Substance: INSULIN HUMAN
     Dosage: 32 U, EACH MORNING
     Route: 065
     Dates: start: 20210916

REACTIONS (5)
  - Blood glucose increased [Recovering/Resolving]
  - Headache [Unknown]
  - Palpitations [Unknown]
  - Glycosylated haemoglobin abnormal [Unknown]
  - Blood glucose decreased [Unknown]

NARRATIVE: CASE EVENT DATE: 20210914
